FAERS Safety Report 4772535-3 (Version None)
Quarter: 2005Q3

REPORT INFORMATION
  Report Type: 
  Country: None (occurrence: None)
  Receive Date: 20050915
  Receipt Date: 20050915
  Transmission Date: 20060218
  Serious: Yes (Death)
  Sender: FDA-Public Use
  Company Number: None

PATIENT
  Sex: Male
  Weight: 74.3899 kg

DRUGS (2)
  1. TAXOTERE [Suspect]
     Indication: LUNG NEOPLASM MALIGNANT
     Dosage: 56.1 MG   WEEKLY  IV
     Route: 042
  2. GLEEVEC [Suspect]
     Dosage: 600 MG  DAILY   PO
     Route: 048

REACTIONS (1)
  - DISEASE PROGRESSION [None]
